FAERS Safety Report 8213533-7 (Version None)
Quarter: 2012Q1

REPORT INFORMATION
  Report Type: 
  Country: None (occurrence: None)
  Receive Date: 20120315
  Receipt Date: 20120308
  Transmission Date: 20120608
  Serious: Yes (Other)
  Sender: FDA-Public Use
  Company Number: US-GILEAD-2011-0047120

PATIENT
  Sex: Female

DRUGS (11)
  1. TORSEMIDE [Concomitant]
     Indication: PULMONARY HYPERTENSION
     Dosage: UNK
     Dates: start: 20071127
  2. CICLETANINE HYDROCHLORIDE [Suspect]
     Dosage: 150 MG, BID
     Route: 048
     Dates: start: 20100824, end: 20100922
  3. REVATIO [Suspect]
     Indication: PULMONARY ARTERIAL HYPERTENSION
  4. CICLETANINE HYDROCHLORIDE [Suspect]
     Dosage: 150 MG, QD
     Route: 048
     Dates: start: 20101110, end: 20101214
  5. PAROXETINE HCL [Concomitant]
     Indication: DEPRESSION
     Dosage: UNK
     Dates: start: 20050218
  6. CICLETANINE HYDROCHLORIDE [Suspect]
     Indication: PULMONARY ARTERIAL HYPERTENSION
     Dosage: 2 DF, BID
     Route: 048
     Dates: start: 20101215
  7. CLONAZEPAM [Concomitant]
     Indication: INSOMNIA
     Dosage: UNK
     Dates: start: 20050218
  8. POTASSIUM CHLORIDE [Concomitant]
     Indication: HYPOKALAEMIA
     Dosage: UNK
     Dates: start: 20110331
  9. LETAIRIS [Suspect]
     Indication: PULMONARY ARTERIAL HYPERTENSION
     Dosage: 5 MG, QD
     Route: 048
     Dates: start: 20111105, end: 20111121
  10. OXYGEN [Concomitant]
     Indication: HYPOXIA
     Dosage: UNK
     Dates: start: 20050422
  11. METOLAZONE [Concomitant]
     Indication: PULMONARY HYPERTENSION
     Dosage: UNK
     Dates: start: 20071019

REACTIONS (2)
  - ASPARTATE AMINOTRANSFERASE INCREASED [None]
  - ALANINE AMINOTRANSFERASE INCREASED [None]
